FAERS Safety Report 4354273-4 (Version None)
Quarter: 2004Q2

REPORT INFORMATION
  Report Type: 
  Country: None (occurrence: None)
  Receive Date: 20040506
  Receipt Date: 20040426
  Transmission Date: 20050107
  Serious: Yes (Other)
  Sender: FDA-Public Use
  Company Number: GB-BRISTOL-MYERS SQUIBB COMPANY-12570206

PATIENT
  Age: 65 Year
  Sex: Male
  Weight: 100 kg

DRUGS (3)
  1. COAPROVEL [Suspect]
     Indication: HYPERTENSION
     Route: 048
     Dates: start: 20040115, end: 20040330
  2. VENTOLIN [Concomitant]
     Indication: ASTHMA
     Dosage: 2 PUFFS DAILY
     Route: 055
  3. BECLOFORTE INHALER [Concomitant]
     Dosage: 2 PUFFS TWICE DAILY
     Route: 055

REACTIONS (2)
  - NIGHTMARE [None]
  - SLEEP DISORDER [None]
